FAERS Safety Report 8326141-4 (Version None)
Quarter: 2012Q2

REPORT INFORMATION
  Report Type: 
  Country: None (occurrence: None)
  Receive Date: 20120501
  Receipt Date: 20120419
  Transmission Date: 20120825
  Serious: Yes (Other)
  Sender: FDA-Public Use
  Company Number: CA-ROCHE-1062134

PATIENT
  Sex: Female
  Weight: 68.1 kg

DRUGS (10)
  1. MABTHERA [Suspect]
     Indication: RHEUMATOID ARTHRITIS
     Route: 042
     Dates: start: 20101104, end: 20110816
  2. SULFAZINE [Concomitant]
  3. PLAQUENIL [Concomitant]
  4. AVAPRO [Concomitant]
  5. ACETAMINOPHEN [Concomitant]
     Indication: PREMEDICATION
     Route: 048
     Dates: start: 20110816, end: 20110816
  6. METHYLPREDNISOLONE [Concomitant]
     Indication: PREMEDICATION
     Route: 042
     Dates: start: 20110816, end: 20110816
  7. METHOTREXATE [Concomitant]
  8. DIPHENHYDRAMINE HCL [Concomitant]
     Indication: PREMEDICATION
     Route: 048
     Dates: start: 20110816, end: 20110816
  9. PREDNISOLONE [Concomitant]
  10. ARAVA [Concomitant]

REACTIONS (1)
  - SPINAL FRACTURE [None]
